FAERS Safety Report 25842360 (Version 2)
Quarter: 2025Q3

REPORT INFORMATION
  Report Type: Spontaneous
  Country: US (occurrence: US)
  Receive Date: 20250924
  Receipt Date: 20250930
  Transmission Date: 20251021
  Serious: No
  Sender: PFIZER
  Company Number: US-PFIZER INC-202500188627

PATIENT
  Age: 47 Year
  Sex: Female

DRUGS (11)
  1. XELJANZ XR [Suspect]
     Active Substance: TOFACITINIB CITRATE
     Indication: Rheumatoid arthritis
     Dosage: 1 TABLET (11 MG) BY MOUTH ONCE DAILY
     Route: 048
  2. XELJANZ XR [Suspect]
     Active Substance: TOFACITINIB CITRATE
     Dosage: 1 TABLET (11 MG) BY MOUTH ONCE DAILY
     Route: 048
     Dates: end: 20250923
  3. RIZATRIPTAN BENZOATE [Concomitant]
     Active Substance: RIZATRIPTAN BENZOATE
  4. OMEPRAZOLE [Concomitant]
     Active Substance: OMEPRAZOLE
  5. LASIX [Concomitant]
     Active Substance: FUROSEMIDE
  6. GABAPENTIN [Concomitant]
     Active Substance: GABAPENTIN
  7. SINGULAIR [Concomitant]
     Active Substance: MONTELUKAST SODIUM
  8. CLARITIN [Concomitant]
     Active Substance: LORATADINE
  9. DICLOFENAC SODIUM [Concomitant]
     Active Substance: DICLOFENAC SODIUM
  10. FERROUS SULFATE [Concomitant]
     Active Substance: FERROUS SULFATE
  11. TRIAMCINOLONE [Concomitant]
     Active Substance: TRIAMCINOLONE

REACTIONS (1)
  - Drug ineffective [Unknown]
